FAERS Safety Report 4604124-5 (Version None)
Quarter: 2005Q1

REPORT INFORMATION
  Report Type: 
  Country: None (occurrence: None)
  Receive Date: 20050309
  Receipt Date: 20050309
  Transmission Date: 20050727
  Serious: Yes (Hospitalization, Other)
  Sender: FDA-Public Use
  Company Number: None

PATIENT
  Age: 30 Year
  Sex: Female
  Weight: 52.6173 kg

DRUGS (6)
  1. SEPTRA DS [Suspect]
     Indication: URINARY TRACT INFECTION
     Dosage: 1 PO BID
     Route: 048
  2. ATIVAN [Concomitant]
  3. LEXAPRO [Concomitant]
  4. IBUPROFEN [Concomitant]
  5. DEPO-MEDROL [Concomitant]
  6. ASTELIN [Concomitant]

REACTIONS (10)
  - ALVEOLITIS ALLERGIC [None]
  - DECREASED APPETITE [None]
  - HEADACHE [None]
  - NAUSEA [None]
  - PAIN [None]
  - PNEUMONIA PRIMARY ATYPICAL [None]
  - PYREXIA [None]
  - RASH GENERALISED [None]
  - RASH MACULAR [None]
  - VOMITING [None]
